FAERS Safety Report 4908465-3 (Version None)
Quarter: 2006Q1

REPORT INFORMATION
  Report Type: 
  Country: None (occurrence: None)
  Receive Date: 20060210
  Receipt Date: 20050711
  Transmission Date: 20060701
  Serious: No
  Sender: FDA-Public Use
  Company Number: US-GLAXOSMITHKLINE-A0566768A

PATIENT
  Sex: Female

DRUGS (3)
  1. PAXIL CR [Suspect]
     Indication: ANXIETY DISORDER
     Dosage: 25MG PER DAY
     Route: 048
     Dates: start: 20050301, end: 20050101
  2. PAXIL [Suspect]
     Route: 048
     Dates: end: 20050101
  3. KLONOPIN [Concomitant]

REACTIONS (2)
  - ANORGASMIA [None]
  - LOSS OF LIBIDO [None]
